FAERS Safety Report 7035910-2 (Version None)
Quarter: 2010Q4

REPORT INFORMATION
  Report Type: 
  Country: None (occurrence: None)
  Receive Date: 20101008
  Receipt Date: 20100928
  Transmission Date: 20110411
  Serious: Yes (Other)
  Sender: FDA-Public Use
  Company Number: PHHY2010CA63584

PATIENT
  Sex: Female

DRUGS (5)
  1. ACLASTA/ZOLEDRONATE T29581+A+ [Suspect]
     Indication: OSTEOPOROSIS
     Dosage: UNK
     Route: 042
  2. CALCIUM [Concomitant]
     Dosage: 500 MG, BID
  3. VITAMIN D [Concomitant]
     Dosage: 400 IU, BID
     Dates: start: 20090910
  4. AVAPRO [Concomitant]
     Dosage: 75 MG
  5. PRILOSEC [Concomitant]
     Dosage: 20 MG

REACTIONS (3)
  - BONE SWELLING [None]
  - INJURY [None]
  - OEDEMA PERIPHERAL [None]
